FAERS Safety Report 9276990 (Version 1)
Quarter: 2013Q2

REPORT INFORMATION
  Report Type: Spontaneous
  Country: US (occurrence: None)
  Receive Date: 20130501
  Receipt Date: 20130501
  Transmission Date: 20140414
  Serious: Yes (Other)
  Sender: FDA-Public Use
  Company Number: 13-01850

PATIENT
  Sex: Male

DRUGS (1)
  1. ASTHMANEFRIN [Suspect]
     Dosage: UNIDENTIFIED 054

REACTIONS (1)
  - Haemoptysis [None]
